FAERS Safety Report 14111706 (Version 1)
Quarter: 2017Q4

REPORT INFORMATION
  Report Type: Report from Study
  Country: US (occurrence: US)
  Receive Date: 20171020
  Receipt Date: 20171020
  Transmission Date: 20180321
  Serious: Yes (Other)
  Sender: FDA-Public Use
  Company Number: US-UCBSA-2017041352

PATIENT
  Age: 95 Year
  Sex: Female

DRUGS (4)
  1. CARBIDOPA AND LEVODOPA [Concomitant]
     Active Substance: CARBIDOPA\LEVODOPA
     Indication: PRODUCT USED FOR UNKNOWN INDICATION
  2. PRAMIPEXOLE. [Concomitant]
     Active Substance: PRAMIPEXOLE
     Indication: PRODUCT USED FOR UNKNOWN INDICATION
  3. ROTIGOTINE [Suspect]
     Active Substance: ROTIGOTINE
     Indication: PARKINSON^S DISEASE
     Dosage: UNK
  4. FLUOXETINE [Concomitant]
     Active Substance: FLUOXETINE HYDROCHLORIDE
     Indication: PRODUCT USED FOR UNKNOWN INDICATION

REACTIONS (21)
  - Dizziness [Unknown]
  - Peripheral swelling [Unknown]
  - Hallucination, visual [Unknown]
  - Hallucination, auditory [Unknown]
  - Decreased interest [Unknown]
  - Sleep talking [Unknown]
  - Libido decreased [Unknown]
  - Depressed mood [Unknown]
  - Delusion [Unknown]
  - Ageusia [Unknown]
  - Asthenia [Unknown]
  - Nightmare [Unknown]
  - Choking [Unknown]
  - Drooling [Unknown]
  - Dysphagia [Unknown]
  - Memory impairment [Unknown]
  - Fall [Unknown]
  - Anosmia [Unknown]
  - Micturition urgency [Unknown]
  - Disturbance in attention [Unknown]
  - Nocturia [Unknown]
